FAERS Safety Report 23077665 (Version 2)
Quarter: 2023Q4

REPORT INFORMATION
  Report Type: Spontaneous
  Country: DE (occurrence: DE)
  Receive Date: 20231018
  Receipt Date: 20231020
  Transmission Date: 20240110
  Serious: Yes (Life-Threatening, Hospitalization)
  Sender: FDA-Public Use
  Company Number: DE-BoehringerIngelheim-2023-BI-266995

PATIENT
  Age: 79 Year
  Sex: Male

DRUGS (8)
  1. EMPAGLIFLOZIN [Suspect]
     Active Substance: EMPAGLIFLOZIN
     Indication: Type 2 diabetes mellitus
     Dosage: 1-0-0
  2. Phenprocoumon 3 mg [Concomitant]
     Indication: Atrial fibrillation
     Dosage: AFTER INR
  3. Candesartan/Amlodipin 16/5 mg [Concomitant]
     Indication: Product used for unknown indication
     Dosage: 1-0-1
  4. BISOPROLOL [Concomitant]
     Active Substance: BISOPROLOL\BISOPROLOL FUMARATE
     Indication: Product used for unknown indication
     Dosage: 1-0-1
  5. TORSEMIDE [Concomitant]
     Active Substance: TORSEMIDE
     Indication: Product used for unknown indication
     Dosage: 1-0-0
  6. Spironolacton 25 mg [Concomitant]
     Indication: Product used for unknown indication
     Dosage: 1-0-0
  7. Atorvastatin/Ezetimib 40/10 mg [Concomitant]
     Indication: Product used for unknown indication
     Dosage: 0-0-1
  8. TAMSULOSIN [Concomitant]
     Active Substance: TAMSULOSIN
     Indication: Product used for unknown indication
     Dosage: 0-0-1

REACTIONS (11)
  - Prerenal failure [Recovering/Resolving]
  - Haemorrhage [Unknown]
  - Pain [Unknown]
  - Gastrointestinal infection [Unknown]
  - Vomiting [Unknown]
  - Diarrhoea [Unknown]
  - Bone contusion [Unknown]
  - Dyspnoea [Unknown]
  - Dizziness [Unknown]
  - Abdominal discomfort [Unknown]
  - Blood electrolytes abnormal [Unknown]
